FAERS Safety Report 4785236-2 (Version None)
Quarter: 2005Q3

REPORT INFORMATION
  Report Type: 
  Country: None (occurrence: None)
  Receive Date: 20050929
  Receipt Date: 20050914
  Transmission Date: 20060218
  Serious: Yes (Other)
  Sender: FDA-Public Use
  Company Number: PHHO2004JP09706

PATIENT
  Age: 78 Year
  Sex: Male
  Weight: 62.0067 kg

DRUGS (6)
  1. VISUDYNE [Suspect]
     Indication: MACULAR DEGENERATION
     Dosage: 5.1 MG DAILY, IV
     Route: 042
     Dates: start: 20040702, end: 20040702
  2. BUFFERIN [Concomitant]
  3. TANATRIL [Concomitant]
  4. MAGLAX [Concomitant]
  5. SIGMART [Concomitant]
  6. LENDORMIN [Concomitant]

REACTIONS (9)
  - CONNECTIVE TISSUE DISORDER [None]
  - DETACHMENT OF RETINAL PIGMENT EPITHELIUM [None]
  - EYE HAEMORRHAGE [None]
  - FIBROSIS [None]
  - MACULAR OEDEMA [None]
  - MACULOPATHY [None]
  - RETINAL DEGENERATION [None]
  - RETINAL DISORDER [None]
  - VISUAL ACUITY REDUCED [None]
